FAERS Safety Report 4899815-5 (Version None)
Quarter: 2006Q1

REPORT INFORMATION
  Report Type: 
  Country: None (occurrence: None)
  Receive Date: 20060118
  Receipt Date: 20051011
  Transmission Date: 20060701
  Serious: No
  Sender: FDA-Public Use
  Company Number: 2005001996

PATIENT

DRUGS (7)
  1. TARCEVA [Suspect]
     Indication: PANCREATIC CARCINOMA
     Dosage: 10 MG (QD), ORAL
     Route: 048
     Dates: start: 20050906
  2. GEMZAR (GEBCITABINE HYDROCHLORIDE) [Concomitant]
  3. VICODIN [Concomitant]
  4. MS CONTIN [Concomitant]
  5. PROTONIX [Concomitant]
  6. PANCREASE (PANCRELIPASE) [Concomitant]
  7. MARINOL [Concomitant]

REACTIONS (1)
  - ABNORMAL DREAMS [None]
